FAERS Safety Report 6863829-6 (Version None)
Quarter: 2010Q3

REPORT INFORMATION
  Report Type: 
  Country: None (occurrence: None)
  Receive Date: 20100721
  Receipt Date: 20080310
  Transmission Date: 20110219
  Serious: No
  Sender: FDA-Public Use
  Company Number: US-PFIZER INC-2008022998

PATIENT
  Sex: Female

DRUGS (3)
  1. CHANTIX [Suspect]
     Dates: start: 20080301
  2. NO PRODUCT FOUND [Suspect]
  3. PROZAC [Concomitant]

REACTIONS (1)
  - VISION BLURRED [None]
